FAERS Safety Report 9246036 (Version 1)
Quarter: 2013Q2

REPORT INFORMATION
  Report Type: Report from Study
  Country: BR (occurrence: BR)
  Receive Date: 20130422
  Receipt Date: 20130422
  Transmission Date: 20140414
  Serious: Yes (Other)
  Sender: FDA-Public Use
  Company Number: PHHY2013BR038567

PATIENT
  Sex: Female
  Weight: 20 kg

DRUGS (3)
  1. EXJADE [Suspect]
     Indication: THALASSAEMIA BETA
     Dosage: 25 MG/KG, DAILY (500 MG, DAILY)
     Route: 048
  2. EXJADE [Suspect]
     Dosage: 31 MG/KG, DAILY (625 MG, DAILY)
     Route: 048
  3. BLOOD TRANSFUSION, AUXILIARY PRODUCTS [Concomitant]

REACTIONS (4)
  - Urinary tract infection [Recovered/Resolved]
  - Sinusitis [Recovering/Resolving]
  - Pyrexia [Recovering/Resolving]
  - Headache [Recovering/Resolving]
